FAERS Safety Report 15490180 (Version 3)
Quarter: 2019Q3

REPORT INFORMATION
  Report Type: Report from Study
  Country: US (occurrence: US)
  Receive Date: 20181011
  Receipt Date: 20190702
  Transmission Date: 20191004
  Serious: Yes (Other)
  Sender: FDA-Public Use
  Company Number: US-009507513-1809USA003945

PATIENT
  Age: 85 Year
  Sex: Male
  Weight: 75.7 kg

DRUGS (9)
  1. ASCORBIC ACID. [Concomitant]
     Active Substance: ASCORBIC ACID
     Dosage: UNK
     Dates: start: 2001
  2. LEVOTHYROXINE SODIUM. [Concomitant]
     Active Substance: LEVOTHYROXINE SODIUM
     Dosage: UNK
     Dates: start: 2015
  3. PEMBROLIZUMAB. [Suspect]
     Active Substance: PEMBROLIZUMAB
     Indication: MALIGNANT MELANOMA
     Dosage: 150 MG, CYCLICAL (CYCLE 1 DAY 8, CYCLE 1 DAY 29), STRENGTH: 2 MG/KG
     Route: 042
     Dates: start: 20160201
  4. ONCOLYTIC VIRUS VACCINE (COXSACKIEVIRUS A21) [Suspect]
     Active Substance: COXSACKIEVIRUS A21
     Route: 036
     Dates: start: 20160222, end: 20160222
  5. IBRUTINIB [Concomitant]
     Active Substance: IBRUTINIB
     Dosage: UNK
     Dates: start: 2004
  6. PRANDIN (REPAGLINIDE) [Concomitant]
     Dosage: UNK
     Dates: start: 2013
  7. ONCOLYTIC VIRUS VACCINE (COXSACKIEVIRUS A21) [Suspect]
     Active Substance: COXSACKIEVIRUS A21
     Indication: MALIGNANT MELANOMA
     Route: 036
     Dates: start: 20160125, end: 20160125
  8. MEDROL [Concomitant]
     Active Substance: METHYLPREDNISOLONE
     Dosage: UNK
     Dates: start: 20160224
  9. VITAMIN D (UNSPECIFIED) [Concomitant]
     Active Substance: VITAMIN D NOS
     Dosage: UNK
     Dates: start: 2001

REACTIONS (1)
  - Keratoacanthoma [Recovered/Resolved]

NARRATIVE: CASE EVENT DATE: 20160303
